FAERS Safety Report 5161010-2 (Version None)
Quarter: 2006Q4

REPORT INFORMATION
  Report Type: 
  Country: None (occurrence: None)
  Receive Date: 20061121
  Receipt Date: 20061107
  Transmission Date: 20070319
  Serious: Yes (Other)
  Sender: FDA-Public Use
  Company Number: 2006133585

PATIENT
  Age: 7 Year
  Sex: Female

DRUGS (1)
  1. SOMATROPIN                            (SOMATROPIN) [Suspect]
     Indication: TURNER'S SYNDROME
     Dates: start: 20040701

REACTIONS (3)
  - DIARRHOEA [None]
  - NEUTROPENIA [None]
  - VOMITING [None]
